FAERS Safety Report 8188025-4 (Version None)
Quarter: 2012Q1

REPORT INFORMATION
  Report Type: 
  Country: None (occurrence: None)
  Receive Date: 20120306
  Receipt Date: 20120221
  Transmission Date: 20120608
  Serious: Yes (Other)
  Sender: FDA-Public Use
  Company Number: CA-WATSON-2012-03255

PATIENT
  Age: 5 Year

DRUGS (1)
  1. TOPIRAMATE [Suspect]
     Indication: PARTIAL SEIZURES
     Dosage: TITRATED TO THIS DOSE OVER 6 MONTHS
     Route: 065

REACTIONS (5)
  - APHASIA [None]
  - HEMIPARESIS [None]
  - DYSPHAGIA [None]
  - MOTOR DYSFUNCTION [None]
  - MASTICATION DISORDER [None]
